FAERS Safety Report 16673278 (Version 1)
Quarter: 2019Q3

REPORT INFORMATION
  Report Type: Spontaneous
  Country: US (occurrence: US)
  Receive Date: 20190806
  Receipt Date: 20190806
  Transmission Date: 20191004
  Serious: No
  Sender: FDA-Public Use
  Company Number: US-PFIZER INC-2019333082

PATIENT
  Age: 56 Year
  Sex: Male
  Weight: 93.88 kg

DRUGS (1)
  1. IBRANCE [Suspect]
     Active Substance: PALBOCICLIB
     Indication: MALIGNANT NIPPLE NEOPLASM MALE
     Dosage: 100 MG, DAILY
     Route: 048
     Dates: start: 20190422, end: 20190731

REACTIONS (1)
  - Neoplasm progression [Unknown]
